FAERS Safety Report 5386524-1 (Version None)
Quarter: 2007Q3

REPORT INFORMATION
  Report Type: 
  Country: None (occurrence: None)
  Receive Date: 20070710
  Receipt Date: 20070419
  Transmission Date: 20080115
  Serious: Yes (Hospitalization)
  Sender: FDA-Public Use
  Company Number: 8024985

PATIENT
  Age: 52 Year
  Sex: Male

DRUGS (4)
  1. KEPPRA [Suspect]
  2. CITALOPRAM HYDROBROMIDE [Concomitant]
  3. CARBAMAZEPINE [Concomitant]
  4. GABAPENTIN [Concomitant]

REACTIONS (7)
  - CHEST PAIN [None]
  - HYPOVOLAEMIA [None]
  - INTENTIONAL SELF-INJURY [None]
  - MENTAL DISORDER [None]
  - NEUROSIS [None]
  - SUICIDE ATTEMPT [None]
  - THERAPEUTIC AGENT TOXICITY [None]
